FAERS Safety Report 5082026-0 (Version None)
Quarter: 2006Q3

REPORT INFORMATION
  Report Type: 
  Country: None (occurrence: None)
  Receive Date: 20060811
  Receipt Date: 20060801
  Transmission Date: 20061208
  Serious: Yes (Other)
  Sender: FDA-Public Use
  Company Number: 2005033526

PATIENT
  Age: 41 Year
  Sex: Male

DRUGS (9)
  1. CELEBRA (CELECOXIB) [Suspect]
     Indication: ANKYLOSING SPONDYLITIS
     Dosage: 200 MG (200 MG, 1 IN 1 D), ORAL
     Route: 048
     Dates: start: 19990101
  2. PREDNISONE TAB [Suspect]
     Indication: DRUG USE FOR UNKNOWN INDICATION
     Dosage: 20 MG, ORAL
     Route: 048
     Dates: start: 19850101
  3. CAPTOPRIL [Concomitant]
  4. SULFASALAZINE [Concomitant]
  5. MONOCORDIL (ISOSORBIDE MONONITRATE) [Concomitant]
  6. PROPRANOLOL [Concomitant]
  7. ACETYLSALICYLIC ACID SRT [Concomitant]
  8. ATORVASTATIN CALCIUM [Concomitant]
  9. LIPITOR [Concomitant]

REACTIONS (3)
  - IMPAIRED HEALING [None]
  - LIMB INJURY [None]
  - MYOCARDIAL INFARCTION [None]
